FAERS Safety Report 23827875 (Version 1)
Quarter: 2024Q2

REPORT INFORMATION
  Report Type: Spontaneous
  Country: BR (occurrence: BR)
  Receive Date: 20240507
  Receipt Date: 20240507
  Transmission Date: 20240716
  Serious: Yes (Other)
  Sender: FDA-Public Use
  Company Number: BR-SA-SAC20240501001896

PATIENT
  Age: 20 Month
  Sex: Male
  Weight: 8.2 kg

DRUGS (1)
  1. SABRIL [Suspect]
     Active Substance: VIGABATRIN
     Indication: Microcephaly
     Dosage: 500 MG
     Route: 048
     Dates: start: 2022

REACTIONS (2)
  - Microcephaly [Unknown]
  - Brain injury [Unknown]
